FAERS Safety Report 8578314-3 (Version None)
Quarter: 2012Q3

REPORT INFORMATION
  Report Type: 
  Country: None (occurrence: None)
  Receive Date: 20120808
  Receipt Date: 20120730
  Transmission Date: 20120928
  Serious: Yes (Hospitalization)
  Sender: FDA-Public Use
  Company Number: IT-JNJFOC-20110906671

PATIENT
  Sex: Male
  Weight: 60.5 kg

DRUGS (4)
  1. MESALAMINE [Concomitant]
     Route: 054
  2. ANTIBIOTICS [Concomitant]
     Indication: CROHN'S DISEASE
     Route: 048
  3. REMICADE [Suspect]
     Indication: CROHN'S DISEASE
     Route: 042
     Dates: start: 20110517
  4. REMICADE [Suspect]
     Route: 042
     Dates: start: 20110628

REACTIONS (1)
  - CROHN'S DISEASE [None]
